FAERS Safety Report 6670714-1 (Version None)
Quarter: 2010Q2

REPORT INFORMATION
  Report Type: 
  Country: None (occurrence: None)
  Receive Date: 20100407
  Receipt Date: 20100402
  Transmission Date: 20101027
  Serious: Yes (Hospitalization)
  Sender: FDA-Public Use
  Company Number: US-B.I. PHARMACEUTICALS,INC./RIDGEFIELD-2010-BP-03866BP

PATIENT

DRUGS (1)
  1. AGGRENOX [Suspect]

REACTIONS (2)
  - DIZZINESS [None]
  - HIP FRACTURE [None]
